FAERS Safety Report 24269007 (Version 1)
Quarter: 2024Q3

REPORT INFORMATION
  Report Type: Spontaneous
  Country: US (occurrence: US)
  Receive Date: 20240830
  Receipt Date: 20240830
  Transmission Date: 20241017
  Serious: No
  Sender: ROCHE
  Company Number: US-ROCHE-10000068961

PATIENT
  Age: 28 Year
  Sex: Female

DRUGS (1)
  1. NUTROPIN AQ [Suspect]
     Active Substance: SOMATROPIN
     Indication: Product used for unknown indication
     Dosage: NUSPIN 10MG/2ML
     Route: 058

REACTIONS (2)
  - Incorrect route of product administration [Unknown]
  - No adverse event [Unknown]
